FAERS Safety Report 9193095 (Version 1)
Quarter: 2013Q1

REPORT INFORMATION
  Report Type: Report from Study
  Country: IT (occurrence: IT)
  Receive Date: 20130327
  Receipt Date: 20130327
  Transmission Date: 20140127
  Serious: Yes (Death)
  Sender: FDA-Public Use
  Company Number: IT-ASTELLAS-2013EU002790

PATIENT
  Age: 69 Year
  Sex: Male

DRUGS (4)
  1. MICAFUNGIN INJECTION [Suspect]
     Indication: FUNGAL INFECTION
     Dosage: 100 MG, UNKNOWN/D
     Route: 065
     Dates: end: 20120404
  2. DOPAMINE [Concomitant]
     Dosage: UNK
     Route: 065
  3. TIGACIL [Concomitant]
     Dosage: UNK
     Route: 065
  4. GENTAMYCIN                         /00047101/ [Concomitant]
     Dosage: UNK
     Route: 065

REACTIONS (3)
  - Septic shock [Fatal]
  - Klebsiella sepsis [Fatal]
  - Multi-organ failure [Fatal]
